FAERS Safety Report 6183922-3 (Version None)
Quarter: 2009Q2

REPORT INFORMATION
  Report Type: 
  Country: None (occurrence: None)
  Receive Date: 20090506
  Receipt Date: 20090506
  Transmission Date: 20091009
  Serious: No
  Sender: FDA-Public Use
  Company Number: None

PATIENT
  Age: 51 Year
  Sex: Female
  Weight: 72.5755 kg

DRUGS (1)
  1. PILOCARPINE [Suspect]
     Dosage: 5 MG Q 6
     Dates: start: 20090418

REACTIONS (3)
  - DYSPHONIA [None]
  - DYSPNOEA [None]
  - UNEVALUABLE EVENT [None]
